FAERS Safety Report 7066452-6 (Version None)
Quarter: 2010Q4

REPORT INFORMATION
  Report Type: 
  Country: None (occurrence: None)
  Receive Date: 20101027
  Receipt Date: 20091203
  Transmission Date: 20110411
  Serious: No
  Sender: FDA-Public Use
  Company Number: US-WYE-H12526609

PATIENT

DRUGS (1)
  1. PREMPRO [Suspect]
     Dosage: 0.3MG/1.5MG; FREQUENCY UNKNOWN
     Route: 065
     Dates: start: 20091125

REACTIONS (2)
  - PRODUCT QUALITY ISSUE [None]
  - URTICARIA [None]
